FAERS Safety Report 18586747 (Version 2)
Quarter: 2021Q1

REPORT INFORMATION
  Report Type: Spontaneous
  Country: CN (occurrence: CN)
  Receive Date: 20201207
  Receipt Date: 20210111
  Transmission Date: 20210419
  Serious: Yes (Life-Threatening, Hospitalization)
  Sender: FDA-Public Use
  Company Number: CN-SUN PHARMACEUTICAL INDUSTRIES LTD-2020R1-269921

PATIENT
  Age: 73 Year
  Sex: Male
  Weight: 51 kg

DRUGS (5)
  1. NIFEDIPINE. [Concomitant]
     Active Substance: NIFEDIPINE
     Indication: HYPERTENSION
     Dosage: UNK
     Route: 048
  2. CAPECITABINE. [Suspect]
     Active Substance: CAPECITABINE
     Indication: GASTRIC CANCER
     Dosage: 1.5 MILLIGRAM, BID
     Route: 065
  3. TEGAFUR/GIMERACIL/OTERACIL [Suspect]
     Active Substance: GIMERACIL\OTERACIL\TEGAFUR
     Indication: RECTAL CANCER
  4. CAPECITABINE. [Suspect]
     Active Substance: CAPECITABINE
     Indication: RECTAL CANCER
  5. TEGAFUR/GIMERACIL/OTERACIL [Suspect]
     Active Substance: GIMERACIL\OTERACIL\TEGAFUR
     Indication: GASTRIC CANCER
     Dosage: 50 MILLIGRAM, BID
     Route: 065

REACTIONS (8)
  - Leukopenia [Recovering/Resolving]
  - Neutropenia [Recovering/Resolving]
  - Overdose [Unknown]
  - Palmar-plantar erythrodysaesthesia syndrome [Recovering/Resolving]
  - Thrombocytopenia [Recovering/Resolving]
  - Bone marrow disorder [Recovering/Resolving]
  - Supraventricular extrasystoles [Recovering/Resolving]
  - Stomatitis [Recovering/Resolving]
